FAERS Safety Report 5358184-7 (Version None)
Quarter: 2007Q2

REPORT INFORMATION
  Report Type: 
  Country: None (occurrence: None)
  Receive Date: 20070530
  Receipt Date: 20061027
  Transmission Date: 20071010
  Serious: Yes (Hospitalization)
  Sender: FDA-Public Use
  Company Number: US200605002708

PATIENT
  Age: 42 Year
  Sex: Male
  Weight: 127.4 kg

DRUGS (3)
  1. ZYPREXA [Suspect]
     Indication: PARANOIA
     Dosage: 10 MG
     Dates: start: 19990501
  2. SEROQUEL [Concomitant]
  3. GEODON [Concomitant]

REACTIONS (6)
  - BLOOD CHOLESTEROL INCREASED [None]
  - BLOOD GLUCOSE INCREASED [None]
  - DIABETES MELLITUS [None]
  - HYPERGLYCAEMIA [None]
  - METABOLIC DISORDER [None]
  - OBESITY [None]
